FAERS Safety Report 7783292-0 (Version None)
Quarter: 2011Q3

REPORT INFORMATION
  Report Type: 
  Country: None (occurrence: None)
  Receive Date: 20110928
  Receipt Date: 20110920
  Transmission Date: 20111222
  Serious: Yes (Disabling)
  Sender: FDA-Public Use
  Company Number: FI-JNJFOC-20110412093

PATIENT
  Age: 82 Year
  Sex: Male

DRUGS (4)
  1. LEVOFLOXACIN [Suspect]
     Indication: PNEUMONIA
     Route: 048
     Dates: start: 20110416, end: 20110420
  2. TENOBLOCK [Concomitant]
     Route: 065
  3. PULMICORT [Concomitant]
     Route: 065
     Dates: start: 20110418
  4. WARFARIN [Concomitant]
     Route: 065

REACTIONS (3)
  - HYPOKINESIA [None]
  - DISCOMFORT [None]
  - TENDONITIS [None]
